FAERS Safety Report 23784623 (Version 1)
Quarter: 2024Q2

REPORT INFORMATION
  Report Type: Other
  Country: IE (occurrence: IE)
  Receive Date: 20240425
  Receipt Date: 20240425
  Transmission Date: 20240716
  Serious: Yes (Other)
  Sender: FDA-Public Use
  Company Number: IE-BIOCON BIOLOGICS LIMITED-BBL2024002437

PATIENT

DRUGS (1)
  1. ADALIMUMAB [Suspect]
     Active Substance: ADALIMUMAB\ISOPROPYL ALCOHOL
     Indication: Hidradenitis
     Dosage: UNKNOWN
     Route: 065
     Dates: start: 201706, end: 202109

REACTIONS (7)
  - Hepatic cirrhosis [Unknown]
  - Pleural effusion [Recovered/Resolved]
  - Right ventricular failure [Recovered/Resolved]
  - Congestive hepatopathy [Unknown]
  - Pericarditis constrictive [Recovered/Resolved]
  - N-terminal prohormone brain natriuretic peptide increased [Unknown]
  - Diastolic dysfunction [Recovered/Resolved]
